FAERS Safety Report 5599389-X (Version None)
Quarter: 2007Q4

REPORT INFORMATION
  Report Type: 
  Country: None (occurrence: None)
  Receive Date: 20071226
  Receipt Date: 20071125
  Transmission Date: 20080405
  Serious: No
  Sender: FDA-Public Use
  Company Number: 2007PV033763

PATIENT
  Age: 53 Year
  Sex: Male

DRUGS (5)
  1. SYMLIN [Suspect]
     Indication: TYPE 2 DIABETES MELLITUS
     Dosage: 120, 60 MCG, TID, SC
     Route: 058
     Dates: start: 20071001, end: 20071001
  2. SYMLIN [Suspect]
     Indication: TYPE 2 DIABETES MELLITUS
     Dosage: 120, 60 MCG, TID, SC
     Route: 058
     Dates: start: 20071001
  3. LANTUS [Concomitant]
  4. AMARYL [Concomitant]
  5. JANUVIA [Concomitant]

REACTIONS (4)
  - BLOOD GLUCOSE INCREASED [None]
  - DRUG INEFFECTIVE [None]
  - FATIGUE [None]
  - VISION BLURRED [None]
